FAERS Safety Report 6194728-3 (Version None)
Quarter: 2009Q2

REPORT INFORMATION
  Report Type: 
  Country: None (occurrence: None)
  Receive Date: 20090515
  Receipt Date: 20090515
  Transmission Date: 20091009
  Serious: Yes (Other)
  Sender: FDA-Public Use
  Company Number: None

PATIENT
  Age: 25 Year
  Sex: Female
  Weight: 61.2356 kg

DRUGS (5)
  1. YAZ [Suspect]
     Indication: POLYCYSTIC OVARIES
     Dosage: 1 TABLET 1X/DAY PO
     Route: 048
     Dates: start: 20090101, end: 20090430
  2. ALLEGRA D 24 HOUR [Concomitant]
  3. RETIN-A [Concomitant]
  4. CLINDAMYCIN PHOSPHATE TOPICAL SOLUTION [Concomitant]
  5. SERTRALINE HYDROCHLORIDE [Concomitant]

REACTIONS (6)
  - DECREASED INTEREST [None]
  - DEPRESSION [None]
  - FATIGUE [None]
  - FEELING ABNORMAL [None]
  - MALAISE [None]
  - NAUSEA [None]
